FAERS Safety Report 25397018 (Version 1)
Quarter: 2025Q2

REPORT INFORMATION
  Report Type: Spontaneous
  Country: AU (occurrence: AU)
  Receive Date: 20250604
  Receipt Date: 20250604
  Transmission Date: 20250716
  Serious: Yes (Death, Hospitalization, Other)
  Sender: GILEAD
  Company Number: AU-GILEAD-2025-0715514

PATIENT
  Age: 68 Year
  Sex: Male

DRUGS (1)
  1. YESCARTA [Suspect]
     Active Substance: AXICABTAGENE CILOLEUCEL
     Indication: Diffuse large B-cell lymphoma
     Route: 065
     Dates: start: 20250519, end: 20250519

REACTIONS (3)
  - Cytokine release syndrome [Fatal]
  - Immune effector cell-associated neurotoxicity syndrome [Fatal]
  - Lactic acidosis [Fatal]

NARRATIVE: CASE EVENT DATE: 20250520
